FAERS Safety Report 13696699 (Version 1)
Quarter: 2017Q2

REPORT INFORMATION
  Report Type: Spontaneous
  Country: US (occurrence: US)
  Receive Date: 20170628
  Receipt Date: 20170628
  Transmission Date: 20170830
  Serious: Yes (Other)
  Sender: FDA-Public Use
  Company Number: US-APOTEX-2017AP012919

PATIENT
  Sex: Female

DRUGS (3)
  1. GEODON [Suspect]
     Active Substance: ZIPRASIDONE HYDROCHLORIDE\ZIPRASIDONE MESYLATE
     Indication: BIPOLAR DISORDER
     Dosage: 80 MG, BID
     Route: 048
  2. ZIPRASIDONE HCL [Suspect]
     Active Substance: ZIPRASIDONE HYDROCHLORIDE
     Indication: BIPOLAR DISORDER
     Dosage: 1 DF, BID
     Route: 048
  3. VITAMIN D                          /00107901/ [Concomitant]
     Active Substance: ERGOCALCIFEROL
     Indication: SUPPLEMENTATION THERAPY
     Dosage: 1 DF, QD
     Route: 048
     Dates: start: 2015

REACTIONS (9)
  - Product quality issue [Not Recovered/Not Resolved]
  - Weight increased [Unknown]
  - Blood cholesterol increased [Not Recovered/Not Resolved]
  - Loss of consciousness [Recovered/Resolved]
  - Platelet count increased [Unknown]
  - Blood cholesterol decreased [Unknown]
  - Dizziness [Recovered/Resolved]
  - High density lipoprotein decreased [Not Recovered/Not Resolved]
  - Abdominal pain upper [Recovered/Resolved]

NARRATIVE: CASE EVENT DATE: 201603
